FAERS Safety Report 6935109-1 (Version None)
Quarter: 2010Q3

REPORT INFORMATION
  Report Type: 
  Country: None (occurrence: None)
  Receive Date: 20100822
  Receipt Date: 20100812
  Transmission Date: 20110219
  Serious: Yes (Other)
  Sender: FDA-Public Use
  Company Number: PHHO2010BE12205

PATIENT

DRUGS (9)
  1. CGS 20267 T30748+TAB [Suspect]
     Indication: BREAST CANCER
     Dosage: 2.5 MG
     Route: 048
     Dates: start: 20100617, end: 20100807
  2. DIXARIT [Concomitant]
  3. TRAZOLAN [Concomitant]
  4. FUROSEMIDE [Concomitant]
  5. SIMVASTATIN [Concomitant]
  6. IMODIUM [Concomitant]
  7. BONIVA [Concomitant]
  8. STEOVIT D3 [Concomitant]
  9. BUDENOFALK [Concomitant]

REACTIONS (6)
  - ASTHENIA [None]
  - DRUG INTOLERANCE [None]
  - FLUSHING [None]
  - HYPERHIDROSIS [None]
  - HYPOTENSION [None]
  - INSOMNIA [None]
